FAERS Safety Report 23092008 (Version 1)
Quarter: 2023Q4

REPORT INFORMATION
  Report Type: Other
  Country: GB (occurrence: GB)
  Receive Date: 20231021
  Receipt Date: 20231021
  Transmission Date: 20240109
  Serious: Yes (Disabling, Other)
  Sender: FDA-Public Use
  Company Number: GB-MHRA-MED-202310070808419870-JRLNY

PATIENT

DRUGS (2)
  1. TIMOLOL [Suspect]
     Active Substance: TIMOLOL
     Dosage: EYE DROPS 5MG/ML BD BOTH EYES; ;
     Dates: start: 20200415
  2. BRINZOLAMIDE [Concomitant]
     Active Substance: BRINZOLAMIDE
     Indication: Normal tension glaucoma
     Dates: start: 20200526, end: 20230601

REACTIONS (1)
  - Bronchiectasis [Recovering/Resolving]

NARRATIVE: CASE EVENT DATE: 20230110
